FAERS Safety Report 18781324 (Version 2)
Quarter: 2025Q2

REPORT INFORMATION
  Report Type: Spontaneous
  Country: IT (occurrence: IT)
  Receive Date: 20210125
  Receipt Date: 20250624
  Transmission Date: 20250717
  Serious: Yes (Hospitalization, Other)
  Sender: AUROBINDO
  Company Number: IT-PIAM-20210001

PATIENT
  Age: 7 Year
  Sex: Female

DRUGS (6)
  1. MOXIFLOXACIN [Interacting]
     Active Substance: MOXIFLOXACIN
     Indication: Encephalitis bacterial
     Route: 065
  2. LINEZOLID [Interacting]
     Active Substance: LINEZOLID
     Indication: Encephalitis bacterial
     Route: 065
  3. AMIKACIN [Interacting]
     Active Substance: AMIKACIN
     Indication: Encephalitis bacterial
     Route: 065
  4. CYCLOSERINE [Interacting]
     Active Substance: CYCLOSERINE
     Indication: Encephalitis bacterial
     Route: 065
  5. ETHAMBUTOL [Interacting]
     Active Substance: ETHAMBUTOL HYDROCHLORIDE
     Indication: Encephalitis bacterial
     Route: 065
  6. ISONIAZID [Suspect]
     Active Substance: ISONIAZID
     Indication: Encephalitis bacterial
     Route: 065

REACTIONS (6)
  - Dysdiadochokinesis [Recovering/Resolving]
  - Dysmetria [Recovering/Resolving]
  - Encephalitis [Recovering/Resolving]
  - Vertigo [Recovering/Resolving]
  - Dyskinesia [Recovering/Resolving]
  - Language disorder [Recovering/Resolving]
